FAERS Safety Report 23436063 (Version 4)
Quarter: 2024Q1

REPORT INFORMATION
  Report Type: Spontaneous
  Country: US (occurrence: None)
  Receive Date: 20240124
  Receipt Date: 20240221
  Transmission Date: 20240409
  Serious: No
  Sender: FDA-Public Use
  Company Number: 2024A017365

PATIENT
  Age: 47 Year
  Sex: Female

DRUGS (2)
  1. SYMBICORT [Suspect]
     Active Substance: BUDESONIDE\FORMOTEROL FUMARATE DIHYDRATE
     Dosage: 160/4.5 UG, 120 INHALATIONS UNKNOWN
     Route: 055
  2. BUDESONIDE\FORMOTEROL FUMARATE DIHYDRATE [Suspect]
     Active Substance: BUDESONIDE\FORMOTEROL FUMARATE DIHYDRATE
     Indication: Cough variant asthma
     Dosage: 2 PUFFS BID
     Route: 055
     Dates: start: 20200731

REACTIONS (7)
  - Asthma [Unknown]
  - Respiration abnormal [Unknown]
  - Product after taste [Unknown]
  - Wrong technique in device usage process [Unknown]
  - Device defective [Unknown]
  - Device use issue [Unknown]
  - Wrong technique in product usage process [Unknown]
